FAERS Safety Report 20086678 (Version 2)
Quarter: 2021Q4

REPORT INFORMATION
  Report Type: Spontaneous
  Country: BE (occurrence: BE)
  Receive Date: 20211118
  Receipt Date: 20211118
  Transmission Date: 20220304
  Serious: Yes (Other)
  Sender: FDA-Public Use
  Company Number: BE-ABBVIE-21K-013-4166597-00

PATIENT
  Sex: Female

DRUGS (1)
  1. VALPROATE SODIUM [Suspect]
     Active Substance: VALPROATE SODIUM
     Indication: Epilepsy
     Dosage: ENTERIC SINCE 30 YEARS
     Route: 065

REACTIONS (5)
  - Cerebrovascular accident [Unknown]
  - Dyslexia [Unknown]
  - Incorrect product administration duration [Unknown]
  - Amnesia [Unknown]
  - Headache [Unknown]
